FAERS Safety Report 9834335 (Version 1)
Quarter: 2014Q1

REPORT INFORMATION
  Report Type: Spontaneous
  Country: FR (occurrence: FR)
  Receive Date: 20140122
  Receipt Date: 20140122
  Transmission Date: 20141002
  Serious: Yes (Hospitalization)
  Sender: FDA-Public Use
  Company Number: FR-SA-2014SA007696

PATIENT
  Age: 92 Year
  Sex: Male

DRUGS (5)
  1. LERCANIDIPINE HYDROCHLORIDE [Suspect]
     Indication: HYPERTENSION
     Route: 048
     Dates: end: 20130930
  2. TRIATEC [Suspect]
     Indication: CARDIAC FAILURE
     Route: 048
     Dates: end: 20130930
  3. LASILIX [Suspect]
     Indication: HYPERTENSION
     Route: 048
     Dates: end: 20131023
  4. BISOCE [Suspect]
     Indication: HYPERTENSION
     Route: 048
     Dates: end: 20131023
  5. EXELON [Concomitant]

REACTIONS (4)
  - Fall [Unknown]
  - Hypotension [Recovered/Resolved]
  - Asthenia [Recovered/Resolved]
  - Dizziness [Recovered/Resolved]
